FAERS Safety Report 24987745 (Version 1)
Quarter: 2025Q1

REPORT INFORMATION
  Report Type: Spontaneous
  Country: US (occurrence: US)
  Receive Date: 20250219
  Receipt Date: 20250219
  Transmission Date: 20250409
  Serious: No
  Sender: ALEXION PHARMACEUTICALS
  Company Number: US-AstraZeneca-CH-00807318A

PATIENT

DRUGS (1)
  1. CALQUENCE [Suspect]
     Active Substance: ACALABRUTINIB
     Indication: Chronic lymphocytic leukaemia

REACTIONS (6)
  - Rash [Unknown]
  - Food allergy [Unknown]
  - Haemoglobin abnormal [Unknown]
  - Lymphocyte count increased [Unknown]
  - Lymphocyte count decreased [Unknown]
  - Confusional state [Unknown]
